FAERS Safety Report 24803257 (Version 3)
Quarter: 2025Q1

REPORT INFORMATION
  Report Type: Report from Study
  Country: CA (occurrence: CA)
  Receive Date: 20250103
  Receipt Date: 20250312
  Transmission Date: 20250409
  Serious: Yes (Other)
  Sender: TAKEDA
  Company Number: CA-TAKEDA-2025TUS000219

PATIENT
  Sex: Male

DRUGS (5)
  1. VEDOLIZUMAB [Suspect]
     Active Substance: VEDOLIZUMAB
     Indication: Colitis ulcerative
  2. VEDOLIZUMAB [Suspect]
     Active Substance: VEDOLIZUMAB
  3. VEDOLIZUMAB [Suspect]
     Active Substance: VEDOLIZUMAB
  4. PREDNISONE [Concomitant]
     Active Substance: PREDNISONE
  5. Salofalk [Concomitant]

REACTIONS (6)
  - Colitis ulcerative [Unknown]
  - Serum ferritin decreased [Unknown]
  - Rash pruritic [Unknown]
  - Restlessness [Unknown]
  - Product dose omission issue [Unknown]
  - Acne [Not Recovered/Not Resolved]
